FAERS Safety Report 12676292 (Version 3)
Quarter: 2016Q3

REPORT INFORMATION
  Report Type: Spontaneous
  Country: US (occurrence: US)
  Receive Date: 20160823
  Receipt Date: 20160912
  Transmission Date: 20161109
  Serious: No
  Sender: FDA-Public Use
  Company Number: US-PFIZER INC-2016394488

PATIENT
  Age: 50 Year
  Sex: Female

DRUGS (1)
  1. XELJANZ [Suspect]
     Active Substance: TOFACITINIB CITRATE
     Indication: RHEUMATOID ARTHRITIS
     Dosage: 5 MG, 2X/DAY
     Route: 048
     Dates: start: 201606

REACTIONS (11)
  - Musculoskeletal pain [Unknown]
  - Pyrexia [Not Recovered/Not Resolved]
  - Rosacea [Unknown]
  - Musculoskeletal stiffness [Unknown]
  - Melanocytic naevus [Unknown]
  - Constipation [Unknown]
  - Diarrhoea [Unknown]
  - Drug ineffective [Unknown]
  - Abdominal pain [Unknown]
  - Activities of daily living impaired [Unknown]
  - Local swelling [Unknown]
